FAERS Safety Report 23960817 (Version 3)
Quarter: 2024Q2

REPORT INFORMATION
  Report Type: Report from Study
  Country: ES (occurrence: ES)
  Receive Date: 20240611
  Receipt Date: 20240617
  Transmission Date: 20240716
  Serious: Yes (Death, Hospitalization, Other)
  Sender: FDA-Public Use
  Company Number: ES-ABBVIE-5792761

PATIENT
  Sex: Male

DRUGS (2)
  1. CARBIDOPA\LEVODOPA [Suspect]
     Active Substance: CARBIDOPA\LEVODOPA
     Indication: Parkinson^s disease
     Route: 050
     Dates: start: 20201001, end: 20240605
  2. CARBIDOPA\LEVODOPA [Suspect]
     Active Substance: CARBIDOPA\LEVODOPA

REACTIONS (21)
  - Intestinal obstruction [Fatal]
  - Stoma site erythema [Not Recovered/Not Resolved]
  - Device issue [Unknown]
  - Mobility decreased [Not Recovered/Not Resolved]
  - Stoma site pain [Not Recovered/Not Resolved]
  - Stoma site discharge [Not Recovered/Not Resolved]
  - On and off phenomenon [Unknown]
  - Pneumonia [Unknown]
  - Abnormal faeces [Unknown]
  - Asthenia [Unknown]
  - Abdominal discomfort [Not Recovered/Not Resolved]
  - Dehydration [Unknown]
  - Decreased appetite [Unknown]
  - Renal failure [Unknown]
  - Condition aggravated [Unknown]
  - Ileus paralytic [Unknown]
  - Abdominal adhesions [Unknown]
  - Hospitalisation [Unknown]
  - General physical health deterioration [Unknown]
  - Procedural complication [Fatal]
  - Device dislocation [Unknown]

NARRATIVE: CASE EVENT DATE: 20200101
